FAERS Safety Report 10039326 (Version 1)
Quarter: 2014Q1

REPORT INFORMATION
  Report Type: Spontaneous
  Country: US (occurrence: US)
  Receive Date: 20140326
  Receipt Date: 20140326
  Transmission Date: 20141002
  Serious: No
  Sender: FDA-Public Use
  Company Number: US-PFIZER INC-2014085318

PATIENT
  Age: 62 Year
  Sex: Female
  Weight: 86.16 kg

DRUGS (4)
  1. GABAPENTIN [Suspect]
     Indication: NEUROPATHY PERIPHERAL
     Dosage: 600 MG, 3X/DAY
     Route: 048
  2. GABAPENTIN [Suspect]
     Indication: BURNING SENSATION
     Dosage: 600 MG, 2X/DAY
     Route: 048
  3. GABAPENTIN [Suspect]
     Indication: PAIN
  4. LYRICA [Concomitant]
     Indication: POST HERPETIC NEURALGIA
     Dosage: 75 MG, 3X/DAY

REACTIONS (1)
  - Drug ineffective [Unknown]
